FAERS Safety Report 7297043-X (Version None)
Quarter: 2011Q1

REPORT INFORMATION
  Report Type: 
  Country: None (occurrence: None)
  Receive Date: 20110216
  Receipt Date: 20110209
  Transmission Date: 20110831
  Serious: Yes (Hospitalization)
  Sender: FDA-Public Use
  Company Number: IT-CEPHALON-2010006375

PATIENT
  Sex: Male
  Weight: 90 kg

DRUGS (5)
  1. BENDAMUSTINE HCL [Suspect]
     Indication: MANTLE CELL LYMPHOMA
     Route: 041
     Dates: start: 20101018
  2. OFATUMUMAB [Suspect]
     Indication: MANTLE CELL LYMPHOMA
     Dates: start: 20101018, end: 20101108
  3. OFATUMUMAB [Suspect]
     Dates: start: 20101229
  4. EUTIROX [Concomitant]
     Dates: start: 20030101
  5. PRADIF [Concomitant]

REACTIONS (1)
  - CYTOMEGALOVIRUS INFECTION [None]
